FAERS Safety Report 25768369 (Version 1)
Quarter: 2025Q3

REPORT INFORMATION
  Report Type: Spontaneous
  Country: US (occurrence: US)
  Receive Date: 20250905
  Receipt Date: 20250905
  Transmission Date: 20251020
  Serious: No
  Sender: DOMPE FARMACEUTICI
  Company Number: US-FARMAPROD-202506-2085

PATIENT
  Sex: Female
  Weight: 113.4 kg

DRUGS (24)
  1. OXERVATE [Suspect]
     Active Substance: CENEGERMIN-BKBJ
     Indication: Neurotrophic keratopathy
     Route: 047
     Dates: start: 20250618
  2. DOXYCYCLINE [Concomitant]
     Active Substance: DOXYCYCLINE
  3. RYBELSUS [Concomitant]
     Active Substance: SEMAGLUTIDE
  4. ACETAMINOPHEN AND CODEINE [Concomitant]
     Active Substance: ACETAMINOPHEN\CODEINE PHOSPHATE
  5. VALACYCLOVIR [Concomitant]
     Active Substance: VALACYCLOVIR HYDROCHLORIDE
  6. FLUOROMETHOLONE [Concomitant]
     Active Substance: FLUOROMETHOLONE
  7. ATORVASTATIN CALCIUM [Concomitant]
     Active Substance: ATORVASTATIN CALCIUM
  8. NOVOLOG [Concomitant]
     Active Substance: INSULIN ASPART
  9. LATANOPROST [Concomitant]
     Active Substance: LATANOPROST
  10. PANTOPRAZOLE SODIUM [Concomitant]
     Active Substance: PANTOPRAZOLE SODIUM
  11. SULFAMETHOXAZOLE\TRIMETHOPRIM [Concomitant]
     Active Substance: SULFAMETHOXAZOLE\TRIMETHOPRIM
  12. LIOTHYRONINE SODIUM [Concomitant]
     Active Substance: LIOTHYRONINE SODIUM
  13. CEPHALEXIN [Concomitant]
     Active Substance: CEPHALEXIN
  14. MONTELUKAST SODIUM [Concomitant]
     Active Substance: MONTELUKAST SODIUM
  15. LEVOTHYROXINE SODIUM [Concomitant]
     Active Substance: LEVOTHYROXINE SODIUM
  16. FLUOXETINE HYDROCHLORIDE [Concomitant]
     Active Substance: FLUOXETINE HYDROCHLORIDE
  17. SYNJARDY XR [Concomitant]
     Active Substance: EMPAGLIFLOZIN\METFORMIN HYDROCHLORIDE
  18. LAMOTRIGINE [Concomitant]
     Active Substance: LAMOTRIGINE
  19. ESTRADIOL VALERATE [Concomitant]
     Active Substance: ESTRADIOL VALERATE
  20. TESTOSTERONE CYPIONATE [Concomitant]
     Active Substance: TESTOSTERONE CYPIONATE
  21. FLUCONAZOLE [Concomitant]
     Active Substance: FLUCONAZOLE
  22. MOXIFLOXACIN [Concomitant]
     Active Substance: MOXIFLOXACIN
  23. AUTOLOGOUS HUMAN CORNEAL EPITHELIAL CELLS [Concomitant]
     Active Substance: AUTOLOGOUS HUMAN CORNEAL EPITHELIAL CELLS
  24. PRESERVATIVE FREE TEARS [Concomitant]

REACTIONS (3)
  - Vision blurred [Unknown]
  - Eye pain [Unknown]
  - Eye swelling [Unknown]
